FAERS Safety Report 7357254-1 (Version None)
Quarter: 2011Q1

REPORT INFORMATION
  Report Type: 
  Country: None (occurrence: None)
  Receive Date: 20110317
  Receipt Date: 20110311
  Transmission Date: 20110831
  Serious: No
  Sender: FDA-Public Use
  Company Number: US-PFIZER INC-2011055609

PATIENT
  Sex: Female

DRUGS (3)
  1. IBUPROFEN [Suspect]
     Dosage: UNK
  2. MOBIC [Suspect]
     Dosage: UNK
  3. ACETYLSALICYLIC ACID SRT [Suspect]
     Dosage: UNK

REACTIONS (3)
  - LACRIMATION INCREASED [None]
  - NASAL CONGESTION [None]
  - RHINORRHOEA [None]
